FAERS Safety Report 6970471-5 (Version None)
Quarter: 2010Q3

REPORT INFORMATION
  Report Type: 
  Country: None (occurrence: None)
  Receive Date: 20100824
  Receipt Date: 20090804
  Transmission Date: 20110219
  Serious: Yes (Hospitalization, Other)
  Sender: FDA-Public Use
  Company Number: 2009229262

PATIENT
  Sex: Female
  Weight: 90.7 kg

DRUGS (4)
  1. AMLODIPINE BESYLATE [Suspect]
     Indication: HYPERTENSION
     Dosage: 5 MG, 1X/DAY
  2. WARFARIN SODIUM [Suspect]
     Indication: CARDIAC FIBRILLATION
     Dosage: 2 MG, 1X/DAY
     Dates: start: 20080701
  3. HYDROCHLOROTHIAZIDE [Concomitant]
  4. LOTREL [Concomitant]

REACTIONS (3)
  - ATRIAL FIBRILLATION [None]
  - OEDEMA PERIPHERAL [None]
  - RASH [None]
